FAERS Safety Report 7723645-X (Version None)
Quarter: 2011Q3

REPORT INFORMATION
  Report Type: 
  Country: None (occurrence: None)
  Receive Date: 20110826
  Receipt Date: 20110819
  Transmission Date: 20111222
  Serious: Yes (Hospitalization)
  Sender: FDA-Public Use
  Company Number: DSU-2011-06184

PATIENT
  Age: 8 Month
  Sex: Male

DRUGS (1)
  1. WELCHOL [Suspect]
     Indication: PRODUCT USED FOR UNKNOWN INDICATION
     Dosage: 1 GM (1 GM, QD), PER ORAL
     Route: 048

REACTIONS (3)
  - VOMITING [None]
  - METABOLIC ACIDOSIS [None]
  - DIARRHOEA [None]
